FAERS Safety Report 10049446 (Version 2)
Quarter: 2014Q2

REPORT INFORMATION
  Report Type: Spontaneous
  Country: JP (occurrence: JP)
  Receive Date: 20140401
  Receipt Date: 20140417
  Transmission Date: 20141212
  Serious: Yes (Death, Other)
  Sender: FDA-Public Use
  Company Number: JP-ROCHE-1370329

PATIENT
  Age: 67 Year
  Sex: Male

DRUGS (2)
  1. TAMIFLU [Suspect]
     Indication: INFLUENZA
     Route: 048
     Dates: start: 20140215, end: 20140220
  2. CALONAL [Concomitant]
     Indication: INFLUENZA
     Dosage: FOR TON
     Route: 048
     Dates: start: 20140215

REACTIONS (2)
  - Death [Fatal]
  - Feeling abnormal [Unknown]
